FAERS Safety Report 7900966-9 (Version None)
Quarter: 2011Q4

REPORT INFORMATION
  Report Type: 
  Country: None (occurrence: None)
  Receive Date: 20111108
  Receipt Date: 20111031
  Transmission Date: 20120403
  Serious: Yes (Other)
  Sender: FDA-Public Use
  Company Number: US-BAYER-2011-105842

PATIENT
  Age: 40 Year
  Sex: Female

DRUGS (1)
  1. MIRENA [Suspect]
     Indication: MENORRHAGIA
     Dosage: 20 MCG/24HR, CONT
     Route: 015
     Dates: start: 20111020

REACTIONS (6)
  - INFECTION [None]
  - IMPAIRED WORK ABILITY [None]
  - PROCEDURAL PAIN [None]
  - INSOMNIA [None]
  - APHAGIA [None]
  - POST PROCEDURAL HAEMORRHAGE [None]
